FAERS Safety Report 7336478-3 (Version None)
Quarter: 2011Q1

REPORT INFORMATION
  Report Type: 
  Country: None (occurrence: None)
  Receive Date: 20110307
  Receipt Date: 20110302
  Transmission Date: 20110831
  Serious: Yes (Other)
  Sender: FDA-Public Use
  Company Number: ES-AMGEN-ESPSP2011012007

PATIENT
  Age: 86 Year
  Sex: Male

DRUGS (4)
  1. EFFERALGAN                         /00020001/ [Concomitant]
     Dosage: 1 G, UNK
     Route: 048
  2. LORAZEPAM [Concomitant]
     Dosage: 1 MG, UNK
     Route: 048
  3. NPLATE [Suspect]
     Indication: PRODUCT USED FOR UNKNOWN INDICATION
     Dosage: 164 MG, QWK
     Route: 058
     Dates: start: 20100429, end: 20100604
  4. CIPRALEX [Concomitant]
     Dosage: 10 MG, UNK
     Route: 048

REACTIONS (1)
  - HYPERSENSITIVITY [None]
